FAERS Safety Report 10962147 (Version 1)
Quarter: 2015Q1

REPORT INFORMATION
  Report Type: Spontaneous
  Country: FR (occurrence: FR)
  Receive Date: 20150327
  Receipt Date: 20150327
  Transmission Date: 20150721
  Serious: Yes (Hospitalization, Other)
  Sender: FDA-Public Use
  Company Number: FR-GILEAD-2015-0144560

PATIENT
  Age: 55 Year
  Sex: Male

DRUGS (8)
  1. SEROPLEX [Concomitant]
     Active Substance: ESCITALOPRAM OXALATE
  2. CIALIS [Concomitant]
     Active Substance: TADALAFIL
  3. TRIATEC                            /00116401/ [Concomitant]
     Active Substance: HYDROCHLOROTHIAZIDE
  4. SOVALDI [Suspect]
     Active Substance: SOFOSBUVIR
     Indication: VIRAL HEPATITIS CARRIER
     Dosage: 1 DF, UNK
     Route: 048
     Dates: start: 20150114, end: 20150206
  5. LYRICA [Concomitant]
     Active Substance: PREGABALIN
  6. TEMERIT [Concomitant]
     Active Substance: NEBIVOLOL
  7. CONTRAMAL [Concomitant]
     Active Substance: TRAMADOL HYDROCHLORIDE
  8. COPEGUS [Suspect]
     Active Substance: RIBAVIRIN
     Indication: VIRAL HEPATITIS CARRIER
     Dosage: 4 DF, UNK
     Route: 048
     Dates: start: 20150114, end: 20150206

REACTIONS (2)
  - Acute kidney injury [Recovered/Resolved]
  - Anaemia [Recovered/Resolved]

NARRATIVE: CASE EVENT DATE: 20150202
